FAERS Safety Report 7585194-1 (Version None)
Quarter: 2011Q3

REPORT INFORMATION
  Report Type: 
  Country: None (occurrence: None)
  Receive Date: 20110701
  Receipt Date: 20110622
  Transmission Date: 20111222
  Serious: No
  Sender: FDA-Public Use
  Company Number: US-BIOGENIDEC-2010BI011312

PATIENT
  Sex: Female

DRUGS (1)
  1. TYSABRI [Suspect]
     Indication: MULTIPLE SCLEROSIS
     Route: 042
     Dates: start: 20100104, end: 20110316

REACTIONS (18)
  - MEMORY IMPAIRMENT [None]
  - GENERAL PHYSICAL HEALTH DETERIORATION [None]
  - SWELLING [None]
  - FOOD ALLERGY [None]
  - ASTHENIA [None]
  - DRUG EFFECT DECREASED [None]
  - WEIGHT INCREASED [None]
  - DYSARTHRIA [None]
  - MULTIPLE ALLERGIES [None]
  - BLOOD IMMUNOGLOBULIN G INCREASED [None]
  - OPTIC NERVE DISORDER [None]
  - DRUG INEFFECTIVE [None]
  - ANXIETY [None]
  - INSOMNIA [None]
  - FATIGUE [None]
  - MULTIPLE SCLEROSIS RELAPSE [None]
  - HYPERSENSITIVITY [None]
  - AGITATION [None]
